FAERS Safety Report 6821388-8 (Version None)
Quarter: 2010Q2

REPORT INFORMATION
  Report Type: 
  Country: None (occurrence: None)
  Receive Date: 20100630
  Receipt Date: 20100621
  Transmission Date: 20101027
  Serious: Yes (Other)
  Sender: FDA-Public Use
  Company Number: 014237

PATIENT
  Sex: Female

DRUGS (4)
  1. CIMZIA [Suspect]
     Indication: CROHN'S DISEASE
     Dosage: SUBCUTANEOUS
     Route: 058
  2. CIMZIA [Suspect]
     Indication: RHEUMATOID ARTHRITIS
     Dosage: SUBCUTANEOUS
     Route: 058
  3. MACROBID [Concomitant]
  4. PREDNISONE [Concomitant]

REACTIONS (4)
  - CYSTITIS [None]
  - INCISIONAL HERNIA [None]
  - INJECTION SITE HAEMATOMA [None]
  - SQUAMOUS CELL CARCINOMA [None]
